FAERS Safety Report 17835356 (Version 1)
Quarter: 2020Q2

REPORT INFORMATION
  Report Type: Spontaneous
  Country: US (occurrence: US)
  Receive Date: 20200528
  Receipt Date: 20200528
  Transmission Date: 20200714
  Serious: No
  Sender: FDA-Public Use
  Company Number: US-TEVA-2020-US-1241121

PATIENT
  Sex: Female

DRUGS (2)
  1. BUPRENORPHINE TEVA [Suspect]
     Active Substance: BUPRENORPHINE
     Dosage: 10MCG/HR
     Route: 062
     Dates: start: 2019
  2. BUPRENORPHINE RHODES [Suspect]
     Active Substance: BUPRENORPHINE
     Route: 062
     Dates: start: 2019

REACTIONS (2)
  - Application site pain [Unknown]
  - Application site scar [Unknown]
